FAERS Safety Report 16307629 (Version 1)
Quarter: 2019Q2

REPORT INFORMATION
  Report Type: Spontaneous
  Country: US (occurrence: US)
  Receive Date: 20190514
  Receipt Date: 20190514
  Transmission Date: 20190711
  Serious: No
  Sender: FDA-Public Use
  Company Number: US-CONCORDIA PHARMACEUTICALS INC.-GSH201902-000252

PATIENT
  Age: 75 Year
  Sex: Female

DRUGS (1)
  1. PARNATE [Suspect]
     Active Substance: TRANYLCYPROMINE SULFATE
     Dates: start: 1970

REACTIONS (6)
  - Confusional state [Not Recovered/Not Resolved]
  - Diarrhoea [Not Recovered/Not Resolved]
  - Hallucination [Not Recovered/Not Resolved]
  - Asthenia [Not Recovered/Not Resolved]
  - Drug withdrawal syndrome [Unknown]
  - Headache [Not Recovered/Not Resolved]
